FAERS Safety Report 7287262-0 (Version None)
Quarter: 2011Q1

REPORT INFORMATION
  Report Type: 
  Country: None (occurrence: None)
  Receive Date: 20110211
  Receipt Date: 20110129
  Transmission Date: 20110831
  Serious: Yes (Death)
  Sender: FDA-Public Use
  Company Number: BR-ROCHE-745670

PATIENT
  Sex: Female
  Weight: 35 kg

DRUGS (9)
  1. INFLIXIMAB [Concomitant]
     Dates: start: 20040427, end: 20060801
  2. ETANERCEPT [Concomitant]
     Dates: start: 20070520, end: 20100429
  3. CYCLOPHOSPHAMIDE [Concomitant]
  4. AMIODARONE [Suspect]
     Indication: SUPRAVENTRICULAR TACHYCARDIA
     Route: 048
     Dates: start: 20090101, end: 20101107
  5. TOCILIZUMAB [Suspect]
     Indication: RHEUMATOID ARTHRITIS
     Dosage: FORM: INFUSIONS. THE PATIENT RECEIVED FIVE INFUSIONS.
     Route: 042
     Dates: start: 20100520, end: 20101029
  6. CALCIUM CARBONATE [Suspect]
     Indication: OSTEOPOROSIS
     Route: 048
     Dates: start: 20030101, end: 20101107
  7. OMEPRAZOLE [Suspect]
     Dosage: DOSE: 40 (UNITS UNSPECIFIED)
     Route: 048
     Dates: start: 20090101, end: 20101107
  8. SULFAMETHOXAZOLE AND TRIMETHOPRIM [Concomitant]
     Indication: PROPHYLAXIS
     Route: 048
  9. PAROXETINE [Suspect]
     Indication: DEPRESSION
     Route: 048
     Dates: start: 20090101, end: 20101107

REACTIONS (5)
  - URINARY TRACT INFECTION [None]
  - BRONCHOSPASM [None]
  - TRACHEOBRONCHITIS [None]
  - SINUS DISORDER [None]
  - OBSTRUCTIVE AIRWAYS DISORDER [None]
